FAERS Safety Report 20370127 (Version 5)
Quarter: 2023Q1

REPORT INFORMATION
  Report Type: Report from Study
  Country: CO (occurrence: CO)
  Receive Date: 20220124
  Receipt Date: 20230307
  Transmission Date: 20230418
  Serious: Yes (Other)
  Sender: FDA-Public Use
  Company Number: CO-TAKEDA-2022TUS004128

PATIENT
  Age: 49 Year
  Sex: Female
  Weight: 77 kg

DRUGS (1)
  1. VEDOLIZUMAB [Suspect]
     Active Substance: VEDOLIZUMAB
     Indication: Colitis ulcerative
     Dosage: 300 MILLIGRAM
     Route: 042
     Dates: start: 20210621, end: 20230214

REACTIONS (21)
  - Nephrolithiasis [Recovered/Resolved]
  - Haematochezia [Unknown]
  - Alopecia [Unknown]
  - Eye pain [Unknown]
  - Asthenia [Unknown]
  - Depressive symptom [Unknown]
  - Palpitations [Unknown]
  - Dyspnoea [Unknown]
  - Erythema [Unknown]
  - Headache [Unknown]
  - Fear of disease [Unknown]
  - Diarrhoea [Unknown]
  - Dyschezia [Recovering/Resolving]
  - Dysuria [Unknown]
  - Abdominal pain [Unknown]
  - Decreased appetite [Unknown]
  - Nasal congestion [Unknown]
  - Constipation [Recovering/Resolving]
  - Pyrexia [Unknown]
  - Cough [Unknown]
  - Fatigue [Unknown]

NARRATIVE: CASE EVENT DATE: 20220115
